FAERS Safety Report 5953639-6 (Version None)
Quarter: 2008Q4

REPORT INFORMATION
  Report Type: 
  Country: None (occurrence: None)
  Receive Date: 20081114
  Receipt Date: 20081031
  Transmission Date: 20090506
  Serious: Yes (Other)
  Sender: FDA-Public Use
  Company Number: B0545204A

PATIENT
  Age: 30 Year
  Sex: Male

DRUGS (5)
  1. KIVEXA [Suspect]
     Indication: HIV INFECTION
     Route: 048
     Dates: start: 20051123, end: 20051228
  2. EPIVIR [Suspect]
     Indication: HIV INFECTION
     Route: 048
     Dates: start: 20051228
  3. SUSTIVA [Suspect]
     Indication: HIV INFECTION
     Route: 048
     Dates: start: 20051123, end: 20051228
  4. REYATAZ [Suspect]
     Indication: HIV INFECTION
     Route: 048
     Dates: start: 20051228
  5. VIDEX [Suspect]
     Indication: HIV INFECTION
     Route: 048
     Dates: start: 20051228

REACTIONS (2)
  - HYPERBILIRUBINAEMIA [None]
  - MENTAL DISORDER [None]
